FAERS Safety Report 9675009 (Version 1)
Quarter: 2013Q4

REPORT INFORMATION
  Report Type: Spontaneous
  Country: FR (occurrence: FR)
  Receive Date: 20131107
  Receipt Date: 20131107
  Transmission Date: 20140711
  Serious: Yes (Hospitalization, Other)
  Sender: FDA-Public Use
  Company Number: FR-MERCK-1310FRA013322

PATIENT
  Age: 49 Year
  Sex: Female

DRUGS (17)
  1. NOXAFIL [Suspect]
     Dosage: 200 MG, TID
     Route: 048
     Dates: start: 201301, end: 201309
  2. NEORAL [Interacting]
     Dosage: 75 MG, BID
     Route: 048
     Dates: start: 201303, end: 20130829
  3. GLIVEC [Suspect]
     Indication: CHRONIC MYELOID LEUKAEMIA
     Dosage: 600 MG, QD
     Route: 048
     Dates: start: 2007, end: 2010
  4. TASIGNA [Suspect]
     Indication: CHRONIC MYELOID LEUKAEMIA
     Dosage: 800 MG, QD
     Route: 048
     Dates: start: 201006, end: 201109
  5. SPRYCEL [Suspect]
     Indication: CHRONIC MYELOID LEUKAEMIA
     Dosage: 1 DF, QD
     Route: 048
     Dates: start: 201207, end: 201208
  6. CERUBIDINE [Suspect]
     Indication: ACUTE MYELOID LEUKAEMIA
     Dosage: UNK
     Route: 042
     Dates: start: 201210, end: 201210
  7. ARACYTINE [Suspect]
     Indication: ACUTE MYELOID LEUKAEMIA
     Dosage: UNK
     Route: 042
     Dates: start: 201210, end: 201212
  8. ZAVEDOS [Suspect]
     Indication: ACUTE MYELOID LEUKAEMIA
     Dosage: UNK
     Route: 042
     Dates: start: 201212, end: 201212
  9. ENDOXAN [Suspect]
     Indication: ACUTE MYELOID LEUKAEMIA
     Dosage: UNK
     Route: 042
     Dates: start: 201303, end: 201303
  10. BUSILVEX [Suspect]
     Indication: ACUTE MYELOID LEUKAEMIA
     Dosage: UNK
     Route: 042
     Dates: start: 201303, end: 201303
  11. ROVAMYCINE [Concomitant]
     Dosage: 1 DF, BID
     Route: 048
     Dates: start: 201304
  12. ZELITREX [Concomitant]
     Dosage: 1 DF, BID
     Route: 048
     Dates: start: 201304
  13. WELLVONE [Concomitant]
     Dosage: 1 DF, BID
     Route: 048
  14. MOPRAL (OMEPRAZOLE) [Concomitant]
     Dosage: 1 DF, QD
     Route: 048
     Dates: start: 201303
  15. LYRICA [Concomitant]
     Dosage: 1 DF, BID
     Route: 048
  16. SEROPLEX [Concomitant]
     Dosage: 1 DF, QD
     Route: 048
  17. LEXOMIL [Concomitant]
     Dosage: 0.5 DF, QD
     Route: 048

REACTIONS (5)
  - Myocardial infarction [Recovering/Resolving]
  - Acute coronary syndrome [Recovering/Resolving]
  - Cardiac failure [Recovering/Resolving]
  - Ejection fraction decreased [Recovering/Resolving]
  - Drug interaction [Unknown]
